FAERS Safety Report 9200963 (Version 2)
Quarter: 2013Q2

REPORT INFORMATION
  Report Type: Spontaneous
  Country: FR (occurrence: FR)
  Receive Date: 20130401
  Receipt Date: 20130515
  Transmission Date: 20140414
  Serious: Yes (Death)
  Sender: FDA-Public Use
  Company Number: FR-JNJFOC-20130313206

PATIENT
  Sex: Male
  Weight: 90 kg

DRUGS (6)
  1. RISPERDAL CONSTA [Suspect]
     Indication: IMPULSIVE BEHAVIOUR
     Route: 030
     Dates: start: 201208
  2. RISPERDAL CONSTA [Suspect]
     Indication: ANXIETY
     Route: 030
     Dates: start: 201208
  3. EFFEXOR [Suspect]
     Indication: ANXIETY
     Route: 048
     Dates: start: 2008
  4. EFFEXOR [Suspect]
     Indication: DEPRESSION
     Route: 048
     Dates: start: 2008
  5. TAHOR [Concomitant]
     Indication: HYPERCHOLESTEROLAEMIA
     Route: 065
  6. IMOVANE [Concomitant]
     Indication: INSOMNIA
     Route: 048

REACTIONS (1)
  - Cardiac disorder [Fatal]
